FAERS Safety Report 6888846-1 (Version None)
Quarter: 2010Q3

REPORT INFORMATION
  Report Type: 
  Country: None (occurrence: None)
  Receive Date: 20100730
  Receipt Date: 20071113
  Transmission Date: 20110219
  Serious: No
  Sender: FDA-Public Use
  Company Number: US-PFIZER INC-2007096228

PATIENT
  Sex: Male

DRUGS (1)
  1. LIPITOR [Suspect]
     Dates: start: 19940101

REACTIONS (2)
  - ARTHRALGIA [None]
  - MUSCULAR WEAKNESS [None]
